FAERS Safety Report 19680971 (Version 1)
Quarter: 2021Q3

REPORT INFORMATION
  Report Type: Spontaneous
  Country: GB (occurrence: GB)
  Receive Date: 20210810
  Receipt Date: 20210810
  Transmission Date: 20211014
  Serious: Yes (Life-Threatening, Hospitalization)
  Sender: FDA-Public Use
  Company Number: GB-MYLANLABS-2021M1050381

PATIENT
  Age: 38 Year

DRUGS (7)
  1. INSULIN [Concomitant]
     Active Substance: INSULIN NOS
     Dosage: DOSE: IV HIGH?DOSE INSULIN THERAPY 0.5 U/KG/HR
     Route: 042
     Dates: start: 2020
  2. EPINEPHRINE. [Suspect]
     Active Substance: EPINEPHRINE
     Indication: HYPOTENSION
     Dosage: 0.2 MICROGRAM/KILOGRAM, QMINUTE, DOSE: 0.2 MICROGRAM/KG/MIN
     Route: 041
  3. NOREPINEPHRINE. [Suspect]
     Active Substance: NOREPINEPHRINE
     Indication: HYPOTENSION
     Dosage: 1 MICROGRAM/KILOGRAM, QMINUTE, 1 MICROGRAM/KILOGRAM, QMINUTE, DOSE: 1 MICROGRAM/KG/MIN
     Route: 041
  4. VASOPRESSIN. [Suspect]
     Active Substance: VASOPRESSIN
     Indication: HYPOTENSION
     Dosage: DOSE: 0.05 U/MIN
     Route: 041
  5. INSULIN [Concomitant]
     Active Substance: INSULIN NOS
     Indication: HYPOINSULINAEMIA
     Dosage: DOSE: IV HIGH?DOSE INSULIN THERAPY 1 U/KG/HR
     Route: 042
     Dates: start: 2020
  6. DEXTROSE. [Concomitant]
     Active Substance: DEXTROSE
     Indication: HYPOINSULINAEMIA
     Dosage: RECEIVED 20% + 50%
     Route: 040
  7. AMLODIPINE [Suspect]
     Active Substance: AMLODIPINE BESYLATE
     Indication: INTENTIONAL OVERDOSE
     Dosage: DOSE: UNKNOWN QUANTITY
     Route: 065

REACTIONS (6)
  - Drug ineffective [Unknown]
  - Unresponsive to stimuli [Recovered/Resolved]
  - Toxicity to various agents [Recovering/Resolving]
  - Hypoglycaemia [Recovered/Resolved]
  - Intentional overdose [Recovering/Resolving]
  - Hypotension [Recovering/Resolving]

NARRATIVE: CASE EVENT DATE: 202007
